FAERS Safety Report 6432291-X (Version None)
Quarter: 2009Q4

REPORT INFORMATION
  Report Type: 
  Country: None (occurrence: None)
  Receive Date: 20091105
  Receipt Date: 20091022
  Transmission Date: 20100525
  Serious: Yes (Hospitalization)
  Sender: FDA-Public Use
  Company Number: 1000009475

PATIENT
  Age: 73 Year
  Sex: Female

DRUGS (5)
  1. ESCITALOPRAM OXALATE [Suspect]
     Indication: AFFECTIVE DISORDER
     Dosage: 20 MG (20 MG, 1 IN 1 D),ORAL
  2. DIHYDROERGOTAMINE [Suspect]
     Indication: HYPOTENSION
     Dates: start: 20080101
  3. TEMOZOLOMIDE [Concomitant]
  4. ANTIEPILEPTICS [Concomitant]
  5. CORTISONE [Concomitant]

REACTIONS (9)
  - ALTERED STATE OF CONSCIOUSNESS [None]
  - BRAIN NEOPLASM [None]
  - COMA [None]
  - GENERAL PHYSICAL HEALTH DETERIORATION [None]
  - HYPONATRAEMIA [None]
  - HYPOTENSION [None]
  - INAPPROPRIATE ANTIDIURETIC HORMONE SECRETION [None]
  - MALNUTRITION [None]
  - NEOPLASM RECURRENCE [None]
